FAERS Safety Report 6988357-9 (Version None)
Quarter: 2010Q3

REPORT INFORMATION
  Report Type: 
  Country: None (occurrence: None)
  Receive Date: 20100914
  Receipt Date: 20100819
  Transmission Date: 20110219
  Serious: Yes (Other)
  Sender: FDA-Public Use
  Company Number: GB-021025

PATIENT
  Age: 13 Year
  Sex: Male

DRUGS (12)
  1. PREDNISOLONE [Suspect]
     Indication: HEART TRANSPLANT
  2. TACROLIMUS [Suspect]
     Indication: HEART TRANSPLANT
  3. VINCRISTINE [Suspect]
     Indication: CHEMOTHERAPY
  4. (RITUXIMAB) [Suspect]
     Indication: CHEMOTHERAPY
  5. ETOPOSIDE [Suspect]
     Indication: EPSTEIN-BARR VIRUS ASSOCIATED LYMPHOPROLIFERATIVE DISORDER
  6. DEXRAZOXANE [Concomitant]
     Indication: CHEMOTHERAPY
  7. THIOGUANINE [Concomitant]
     Indication: PRODUCT USED FOR UNKNOWN INDICATION
  8. CYTARABINE [Concomitant]
     Indication: PRODUCT USED FOR UNKNOWN INDICATION
  9. METHOTREXATE [Concomitant]
     Indication: EPSTEIN-BARR VIRUS ASSOCIATED LYMPHOPROLIFERATIVE DISORDER
  10. DOXORUBICIN HCL [Concomitant]
     Indication: EPSTEIN-BARR VIRUS ASSOCIATED LYMPHOPROLIFERATIVE DISORDER
     Dosage: INJECTION INTRAVENOUS
     Route: 042
  11. CYCLOPHOSPHAMIDE [Concomitant]
     Indication: PRODUCT USED FOR UNKNOWN INDICATION
  12. AZATHIOPRINE [Concomitant]
     Indication: HEART TRANSPLANT

REACTIONS (16)
  - ABDOMINAL PAIN [None]
  - ABDOMINAL SYMPTOM [None]
  - BURKITT'S LYMPHOMA [None]
  - CARDIOVASCULAR DISORDER [None]
  - COMPLICATIONS OF TRANSPLANTED HEART [None]
  - DEVICE RELATED SEPSIS [None]
  - EPSTEIN-BARR VIRUS ASSOCIATED LYMPHOPROLIFERATIVE DISORDER [None]
  - EPSTEIN-BARR VIRUS INFECTION [None]
  - LYMPHADENOPATHY [None]
  - MASS [None]
  - MUSCLE CONTRACTIONS INVOLUNTARY [None]
  - PNEUMOCYSTIS JIROVECI PNEUMONIA [None]
  - PNEUMONITIS [None]
  - RENAL FAILURE [None]
  - STAPHYLOCOCCAL BACTERAEMIA [None]
  - TIC [None]
